FAERS Safety Report 4433966-4 (Version None)
Quarter: 2004Q3

REPORT INFORMATION
  Report Type: 
  Country: None (occurrence: None)
  Receive Date: 20040825
  Receipt Date: 20040812
  Transmission Date: 20050211
  Serious: Yes (Other)
  Sender: FDA-Public Use
  Company Number: USA040875406

PATIENT
  Age: 60 Year

DRUGS (1)
  1. EVISTA [Suspect]
     Dosage: UNK; A FEW YEARS
     Route: 065

REACTIONS (1)
  - RETINAL VEIN THROMBOSIS [None]
